FAERS Safety Report 7388847-3 (Version None)
Quarter: 2011Q2

REPORT INFORMATION
  Report Type: 
  Country: None (occurrence: None)
  Receive Date: 20110401
  Receipt Date: 20110321
  Transmission Date: 20111010
  Serious: Yes (Hospitalization, Other)
  Sender: FDA-Public Use
  Company Number: US-BAXTER-2008BH002886

PATIENT
  Age: 29 Year
  Sex: Male
  Weight: 115 kg

DRUGS (14)
  1. DEMEROL [Suspect]
     Route: 030
     Dates: start: 20060324, end: 20060324
  2. PRIMIDONE [Concomitant]
     Indication: PRODUCT USED FOR UNKNOWN INDICATION
     Route: 048
  3. PHENERGAN HCL [Suspect]
     Route: 030
     Dates: start: 20060324, end: 20060324
  4. ZOFRAN [Suspect]
     Indication: PRODUCT USED FOR UNKNOWN INDICATION
     Route: 042
     Dates: start: 20070508
  5. SYNTHROID [Concomitant]
     Indication: PRODUCT USED FOR UNKNOWN INDICATION
     Route: 048
  6. PHENERGAN HCL [Suspect]
     Indication: NAUSEA
     Route: 042
     Dates: start: 20060322, end: 20060324
  7. SODIUM CHLORIDE 0.9% IN PLASTIC CONTAINER [Suspect]
     Indication: PRODUCT USED FOR UNKNOWN INDICATION
     Route: 041
     Dates: start: 20060322, end: 20060324
  8. ZANAFLEX [Concomitant]
     Indication: MUSCLE SPASMS
     Route: 048
  9. TRAZODONE HCL [Concomitant]
     Indication: SLEEP DISORDER
     Route: 048
  10. DEXTROSE 5% AND SODIUM CHLORIDE 0.9% IN PLASTIC CONTAINER [Suspect]
     Indication: PRODUCT USED FOR UNKNOWN INDICATION
     Route: 042
     Dates: start: 20070508
  11. DEMEROL [Suspect]
     Indication: PAIN
     Route: 042
     Dates: start: 20060322, end: 20060324
  12. DILAUDID [Suspect]
     Indication: PRODUCT USED FOR UNKNOWN INDICATION
     Route: 042
     Dates: start: 20070508
  13. ZOLOFT [Concomitant]
     Indication: PRODUCT USED FOR UNKNOWN INDICATION
     Route: 048
  14. PHENERGAN HCL [Suspect]
     Route: 065

REACTIONS (7)
  - ANXIETY [None]
  - EMOTIONAL DISTRESS [None]
  - INJECTION SITE EXTRAVASATION [None]
  - COMPARTMENT SYNDROME [None]
  - PAIN [None]
  - CELLULITIS [None]
  - TINEL'S SIGN [None]
